FAERS Safety Report 15919037 (Version 3)
Quarter: 2019Q1

REPORT INFORMATION
  Report Type: Report from Study
  Country: US (occurrence: US)
  Receive Date: 20190205
  Receipt Date: 20190228
  Transmission Date: 20190417
  Serious: Yes (Hospitalization, Other)
  Sender: FDA-Public Use
  Company Number: US-GILEAD-2019-0388627

PATIENT
  Age: 57 Year
  Sex: Female

DRUGS (1)
  1. AMBRISENTAN [Suspect]
     Active Substance: AMBRISENTAN
     Indication: CONNECTIVE TISSUE DISORDER
     Dosage: 10 MG
     Route: 065
     Dates: start: 20100524

REACTIONS (2)
  - Pneumonia [Unknown]
  - Malaise [Unknown]
